FAERS Safety Report 11580730 (Version 6)
Quarter: 2016Q3

REPORT INFORMATION
  Report Type: Report from Study
  Country: CA (occurrence: CA)
  Receive Date: 20150930
  Receipt Date: 20160901
  Transmission Date: 20161109
  Serious: Yes (Other)
  Sender: FDA-Public Use
  Company Number: CA-ROCHE-1236197

PATIENT
  Sex: Female
  Weight: 92.5 kg

DRUGS (9)
  1. METHOTREXATE. [Concomitant]
     Active Substance: METHOTREXATE
  2. PREDNISONE. [Concomitant]
     Active Substance: PREDNISONE
  3. ACTEMRA [Suspect]
     Active Substance: TOCILIZUMAB
     Indication: RHEUMATOID ARTHRITIS
     Route: 042
     Dates: start: 20080409, end: 20130507
  4. ACTEMRA [Suspect]
     Active Substance: TOCILIZUMAB
     Route: 042
     Dates: start: 20151130
  5. IBUPROFEN. [Concomitant]
     Active Substance: IBUPROFEN
  6. ACTEMRA [Suspect]
     Active Substance: TOCILIZUMAB
     Route: 042
     Dates: start: 20110512
  7. ACTEMRA [Suspect]
     Active Substance: TOCILIZUMAB
     Route: 042
     Dates: start: 20140114
  8. QUINAPRIL. [Concomitant]
     Active Substance: QUINAPRIL
  9. TRIAZIDE [Concomitant]

REACTIONS (15)
  - Foot deformity [Unknown]
  - Squamous cell carcinoma [Unknown]
  - Nasopharyngitis [Unknown]
  - Post procedural persistent drain fluid [Unknown]
  - Back pain [Not Recovered/Not Resolved]
  - Pain [Not Recovered/Not Resolved]
  - Basal cell carcinoma [Unknown]
  - Contusion [Recovering/Resolving]
  - Skin cancer [Not Recovered/Not Resolved]
  - Excessive skin [Unknown]
  - Breast cancer [Not Recovered/Not Resolved]
  - Sciatica [Not Recovered/Not Resolved]
  - Arthralgia [Not Recovered/Not Resolved]
  - Joint swelling [Not Recovered/Not Resolved]
  - Therapeutic response decreased [Unknown]

NARRATIVE: CASE EVENT DATE: 2013
